FAERS Safety Report 4358417-X (Version None)
Quarter: 2004Q2

REPORT INFORMATION
  Report Type: 
  Country: None (occurrence: None)
  Receive Date: 20040514
  Receipt Date: 20020814
  Transmission Date: 20050107
  Serious: Yes (Hospitalization)
  Sender: FDA-Public Use
  Company Number: US-ROCHE-319695

PATIENT
  Age: 53 Year
  Sex: Female
  Weight: 90 kg

DRUGS (22)
  1. DACLIZUMAB [Suspect]
     Dosage: GROUP B
     Route: 042
     Dates: start: 20020731, end: 20020731
  2. DACLIZUMAB [Suspect]
     Route: 042
     Dates: start: 20020815, end: 20020923
  3. MYCOPHENOLATE MOFETIL [Suspect]
     Route: 048
     Dates: start: 20020731
  4. ASPIRIN [Concomitant]
     Dates: start: 19920615
  5. PREDNISONE [Concomitant]
     Dates: start: 20020803
  6. PERCOCET [Concomitant]
     Dates: start: 20020813
  7. MORPHINE SULFATE [Concomitant]
     Dates: start: 20020813
  8. PERI-COLACE [Concomitant]
     Dates: start: 20020731
  9. BACTRIM DS [Concomitant]
     Dates: start: 20020731
  10. CLONIDINE HCL [Concomitant]
     Dosage: DAILY DOSE INCREASED TO 0.4 MG ON 07 NOV 2002.
     Dates: start: 20020731
  11. CYCLOSPORINE [Concomitant]
  12. CATAPRES [Concomitant]
  13. COLACE [Concomitant]
     Dates: start: 20020731, end: 20021112
  14. FLEXERIL [Concomitant]
     Dates: start: 20021107, end: 20021112
  15. PEPCID [Concomitant]
     Dates: start: 20020731
  16. POTASSIUM CHLORIDE [Concomitant]
     Dates: start: 20020916, end: 20020926
  17. MYCELEX [Concomitant]
     Dates: start: 20020401
  18. NEORAL [Concomitant]
     Dates: start: 20020810, end: 20021203
  19. ZESTRIL [Concomitant]
     Dates: start: 20031018
  20. LASIX [Concomitant]
     Dates: start: 20021202
  21. LABETALOL HCL [Concomitant]
     Dates: start: 20021202
  22. NEURONTIN [Concomitant]
     Dates: start: 20021108

REACTIONS (23)
  - ABDOMINAL PAIN [None]
  - BACTERIAL INFECTION [None]
  - CHEST PAIN [None]
  - CHOLELITHIASIS [None]
  - CULTURE WOUND POSITIVE [None]
  - DYSPNOEA [None]
  - FOOT CRUSHING [None]
  - HAEMATOCRIT DECREASED [None]
  - HAEMOGLOBIN DECREASED [None]
  - HEMIPARESIS [None]
  - HERPES ZOSTER [None]
  - HYPERTENSION [None]
  - OBESITY [None]
  - RED BLOOD CELL COUNT DECREASED [None]
  - RED BLOOD CELL COUNT INCREASED [None]
  - ROAD TRAFFIC ACCIDENT [None]
  - STAPHYLOCOCCAL BACTERAEMIA [None]
  - WHITE BLOOD CELL COUNT DECREASED [None]
  - WHITE BLOOD CELL COUNT INCREASED [None]
  - WOUND DEHISCENCE [None]
  - WOUND HAEMORRHAGE [None]
  - WOUND INFECTION STAPHYLOCOCCAL [None]
  - WOUND NECROSIS [None]
